FAERS Safety Report 13556199 (Version 3)
Quarter: 2018Q4

REPORT INFORMATION
  Report Type: Spontaneous
  Country: US (occurrence: US)
  Receive Date: 20170517
  Receipt Date: 20181112
  Transmission Date: 20190204
  Serious: Yes (Other)
  Sender: FDA-Public Use
  Company Number: US-SA-2016SA235013

PATIENT
  Age: 75 Year
  Sex: Female

DRUGS (2)
  1. TOUJEO [Suspect]
     Active Substance: INSULIN GLARGINE
     Dosage: 62 - 80 UNITS, HS
     Route: 065
  2. TOUJEO [Suspect]
     Active Substance: INSULIN GLARGINE
     Indication: TYPE 2 DIABETES MELLITUS
     Dosage: 80 DF,QD
     Route: 065
     Dates: start: 201608

REACTIONS (7)
  - Cataract [Unknown]
  - Glycosylated haemoglobin increased [Unknown]
  - Musculoskeletal stiffness [Unknown]
  - Device issue [Unknown]
  - Gait inability [Unknown]
  - Cough [Unknown]
  - Visual impairment [Unknown]

NARRATIVE: CASE EVENT DATE: 201610
